FAERS Safety Report 5619547-5 (Version None)
Quarter: 2008Q1

REPORT INFORMATION
  Report Type: 
  Country: None (occurrence: None)
  Receive Date: 20080205
  Receipt Date: 20080205
  Transmission Date: 20080703
  Serious: No
  Sender: FDA-Public Use
  Company Number: None

PATIENT
  Sex: Female

DRUGS (2)
  1. BUSPAR [Suspect]
     Indication: ALCOHOL ABUSE
     Dosage: ONE TO TWO UP TO TID PO
     Route: 048
     Dates: start: 20071215, end: 20071220
  2. BUSPAR [Suspect]
     Indication: ANXIETY
     Dosage: ONE TO TWO UP TO TID PO
     Route: 048
     Dates: start: 20071215, end: 20071220

REACTIONS (2)
  - CEREBRAL DISORDER [None]
  - SPEECH DISORDER [None]
